FAERS Safety Report 18840204 (Version 5)
Quarter: 2021Q2

REPORT INFORMATION
  Report Type: Report from Study
  Country: JP (occurrence: JP)
  Receive Date: 20210204
  Receipt Date: 20210630
  Transmission Date: 20210717
  Serious: Yes (Death, Other)
  Sender: FDA-Public Use
  Company Number: JP-AMGEN-JPNSP2020107652

PATIENT
  Age: 46 Year
  Sex: Female

DRUGS (92)
  1. PREDNISOLONE. [Concomitant]
     Active Substance: PREDNISOLONE
     Dosage: 15 MG, QD, AFTER BREAKFAST
     Route: 048
     Dates: start: 20201207, end: 20201207
  2. PREDNISOLONE. [Concomitant]
     Active Substance: PREDNISOLONE
     Dosage: 15 MG, QD, AFTER BREAKFAST
     Route: 048
     Dates: start: 20201208, end: 20210110
  3. AMITIZA [Concomitant]
     Active Substance: LUBIPROSTONE
     Dosage: 48 UG, BID (AFTER BREAKFAST AND DINNER)
     Route: 048
     Dates: start: 20201207, end: 20201207
  4. FILGRASTIM BS [FILGRASTIM BIOSIMILAR 1] [Concomitant]
     Active Substance: FILGRASTIM
     Indication: APLASTIC ANAEMIA
     Dosage: 600 UG, 2X/WEEK
     Route: 065
     Dates: start: 20201105, end: 20210108
  5. MIYA?BM [Concomitant]
     Active Substance: CLOSTRIDIUM BUTYRICUM SPORES STRAIN M-55
     Indication: CONSTIPATION
     Dosage: UNK
     Route: 048
  6. SAIREITO [Concomitant]
     Active Substance: HERBALS
     Dosage: 18 G, TID (BEFORE MEALS)
     Route: 048
     Dates: start: 20201207, end: 20201208
  7. NEXIUM [Concomitant]
     Active Substance: ESOMEPRAZOLE MAGNESIUM
     Dosage: 20 MG, QD, AFTER BREAKFAST
     Route: 048
     Dates: end: 20201122
  8. MIYA?BM [Concomitant]
     Active Substance: CLOSTRIDIUM BUTYRICUM SPORES STRAIN M-55
     Dosage: 2 G, TID (AFTER MEALS)
     Route: 048
     Dates: start: 20201208, end: 20210110
  9. SAIREITO [Concomitant]
     Active Substance: HERBALS
     Dosage: 9 G, TID (BEFORE MEALS)
     Route: 048
     Dates: start: 20210106, end: 20210110
  10. LOCOID [Concomitant]
     Active Substance: HYDROCORTISONE BUTYRATE
     Indication: PRODUCT USED FOR UNKNOWN INDICATION
     Dosage: 5 G, 1 OR 2 TIMES A DAY
     Route: 061
     Dates: start: 20201106, end: 20201106
  11. ALLOID G [Concomitant]
     Active Substance: SODIUM ALGINATE
     Indication: PRODUCT USED FOR UNKNOWN INDICATION
     Dosage: 20 ML, TID (BETWEEN EACH MEAL)
     Route: 048
     Dates: start: 20201127, end: 20201202
  12. PREDNISOLONE. [Concomitant]
     Active Substance: PREDNISOLONE
     Dosage: 15 MG, QD, AFTER BREAKFAST
     Route: 048
     Dates: end: 20201122
  13. AMITIZA [Concomitant]
     Active Substance: LUBIPROSTONE
     Dosage: 24 UG, BID (AFTER BREAKFAST AND DINNER)
     Route: 048
     Dates: start: 20201124, end: 20201206
  14. FEBURIC [Concomitant]
     Active Substance: FEBUXOSTAT
     Indication: HYPERURICAEMIA
     Dosage: 10 MG
     Route: 048
  15. NEXIUM [Concomitant]
     Active Substance: ESOMEPRAZOLE MAGNESIUM
     Dosage: 20 MG, QD, AFTER BREAKFAST
     Route: 048
     Dates: start: 20201207, end: 20201207
  16. REBAMIPIDE [Concomitant]
     Active Substance: REBAMIPIDE
     Dosage: 100 MG, TID (AFTER MEALS)
     Route: 048
     Dates: start: 20201207, end: 20201207
  17. NEORAL [Concomitant]
     Active Substance: CYCLOSPORINE
     Indication: APLASTIC ANAEMIA
     Dosage: UNK
     Route: 048
  18. REVOLADE [Concomitant]
     Active Substance: ELTROMBOPAG OLAMINE
     Indication: APLASTIC ANAEMIA
     Dosage: UNK
     Route: 048
  19. DAIKENCHUTO [Concomitant]
     Active Substance: HERBALS
     Indication: CONSTIPATION
     Dosage: UNK
     Route: 048
  20. MIYA?BM [Concomitant]
     Active Substance: CLOSTRIDIUM BUTYRICUM SPORES STRAIN M-55
     Dosage: 2 G, TID (AFTER MEALS)
     Route: 048
     Dates: end: 20201122
  21. MIYA?BM [Concomitant]
     Active Substance: CLOSTRIDIUM BUTYRICUM SPORES STRAIN M-55
     Dosage: 2 G, TID (AFTER MEALS)
     Route: 048
     Dates: start: 20201124, end: 20201206
  22. NERIPROCT [Concomitant]
     Active Substance: DIFLUCORTOLONE VALERATE\LIDOCAINE
     Indication: HAEMORRHOIDS
     Dosage: UNK
     Route: 061
  23. ISODINE [Concomitant]
     Active Substance: POVIDONE-IODINE
     Indication: PRODUCT USED FOR UNKNOWN INDICATION
     Dosage: 90 G, 1 OR 2 TIMES A DAY
     Route: 061
     Dates: start: 20201207, end: 20201207
  24. POLARAMINE [Concomitant]
     Active Substance: DEXCHLORPHENIRAMINE MALEATE
     Indication: PRODUCT USED FOR UNKNOWN INDICATION
     Dosage: 1 ML, 2X/WEEK
     Route: 041
     Dates: start: 20201105, end: 20210108
  25. PLATELETS [Concomitant]
     Active Substance: HUMAN PLATELET, ALLOGENIC
     Indication: APLASTIC ANAEMIA
     Dosage: UNK, 2X/WEEK
     Route: 065
  26. AMITIZA [Concomitant]
     Active Substance: LUBIPROSTONE
     Indication: CONSTIPATION
     Dosage: 24 UG
     Route: 048
  27. AMITIZA [Concomitant]
     Active Substance: LUBIPROSTONE
     Dosage: 24 UG, BID (AFTER BREAKFAST AND DINNER)
     Route: 048
     Dates: end: 20201122
  28. NEORAL [Concomitant]
     Active Substance: CYCLOSPORINE
     Dosage: 100 MG, BID (AFTER BREAKFAST AND DINNER)
     Route: 048
     Dates: start: 20201124, end: 20201206
  29. FUNGIZONE [Concomitant]
     Active Substance: AMPHOTERICIN B
     Dosage: 2 ML (3 TIMES A DAY)
     Route: 048
     Dates: start: 20201207, end: 20201218
  30. BORRAZA?G [Concomitant]
     Active Substance: LIDOCAINE\TRIBENOSIDE
     Indication: HAEMORRHOIDS
     Dosage: UNK
     Route: 061
  31. DIFFERIN [Concomitant]
     Active Substance: ADAPALENE
     Indication: PRODUCT USED FOR UNKNOWN INDICATION
     Dosage: 30 G, QD
     Route: 061
     Dates: start: 20201109, end: 20201109
  32. SAIREITO [Concomitant]
     Active Substance: HERBALS
     Indication: PRODUCT USED FOR UNKNOWN INDICATION
     Dosage: 9 G, TID (BEFORE MEALS)
     Route: 048
     Dates: start: 20201109, end: 20201206
  33. CALONAL [Concomitant]
     Active Substance: ACETAMINOPHEN
     Dosage: 400 MG, TID (AFTER MEALS)
     Route: 048
     Dates: start: 20201208, end: 20210103
  34. ALLOID G [Concomitant]
     Active Substance: SODIUM ALGINATE
     Dosage: 40 ML, TID (BETWEEN EACH MEAL)
     Route: 048
     Dates: start: 20201207, end: 20201207
  35. ISODINE [Concomitant]
     Active Substance: POVIDONE-IODINE
     Dosage: 90 G  ,1 OR 2 TIMES A DAY
     Route: 061
     Dates: start: 20201228, end: 20201228
  36. NORMAL SALINE [Concomitant]
     Active Substance: SODIUM CHLORIDE
     Dosage: 50 ML
     Route: 041
     Dates: start: 20210109, end: 20210109
  37. FEBURIC [Concomitant]
     Active Substance: FEBUXOSTAT
     Dosage: 10 MG, QD ,AFTER BREAKFAST
     Route: 048
     Dates: start: 20201124, end: 20201206
  38. FEBURIC [Concomitant]
     Active Substance: FEBUXOSTAT
     Dosage: 10 MG, QD, AFTER BREAKFAST
     Route: 048
     Dates: start: 20201208, end: 20210110
  39. REBAMIPIDE [Concomitant]
     Active Substance: REBAMIPIDE
     Dosage: 100 MG, TID (AFTER MEALS)
     Route: 048
     Dates: end: 20201122
  40. REBAMIPIDE [Concomitant]
     Active Substance: REBAMIPIDE
     Dosage: 100 MG, TID (AFTER MEALS)
     Route: 048
     Dates: start: 20201208, end: 20210110
  41. FILGRASTIM BS [FILGRASTIM BIOSIMILAR 1] [Concomitant]
     Active Substance: FILGRASTIM
     Indication: PRODUCT USED FOR UNKNOWN INDICATION
     Dosage: UNK
     Route: 065
     Dates: start: 20210104, end: 20210104
  42. NEORAL [Concomitant]
     Active Substance: CYCLOSPORINE
     Dosage: 100 MG, BID  (AFTER BREAKFAST AND DINNER)
     Route: 048
     Dates: end: 20201122
  43. NEORAL [Concomitant]
     Active Substance: CYCLOSPORINE
     Dosage: 100 MG, BID  (AFTER BREAKFAST AND DINNER)
     Route: 048
     Dates: start: 20201208, end: 20210110
  44. LANSOPRAZOLE. [Concomitant]
     Active Substance: LANSOPRAZOLE
     Indication: PRODUCT USED FOR UNKNOWN INDICATION
     Dosage: UNK
     Route: 048
  45. FUNGIZONE [Concomitant]
     Active Substance: AMPHOTERICIN B
     Dosage: 2 ML (3 TIMES A DAY)
     Route: 048
     Dates: start: 20201221, end: 20210101
  46. KEFRAL [Concomitant]
     Active Substance: CEFACLOR
     Dosage: 250 MG, TID (AFTER MEALS)
     Route: 048
     Dates: start: 20201207, end: 20201223
  47. KEFRAL [Concomitant]
     Active Substance: CEFACLOR
     Dosage: 250 MG, TID (AFTER MEALS)
     Route: 048
     Dates: start: 20201228, end: 20210106
  48. NERIPROCT [Concomitant]
     Active Substance: DIFLUCORTOLONE VALERATE\LIDOCAINE
     Dosage: 2 G, BID
     Route: 061
     Dates: start: 20201109, end: 20201122
  49. TAMIFLU [Concomitant]
     Active Substance: OSELTAMIVIR PHOSPHATE
     Indication: INFLUENZA
     Dosage: UNK
     Route: 048
  50. CALONAL [Concomitant]
     Active Substance: ACETAMINOPHEN
     Indication: PRODUCT USED FOR UNKNOWN INDICATION
     Dosage: 400 MG, TID (AFTER MEALS)
     Route: 048
     Dates: start: 20201124, end: 20201206
  51. ALESION LX [Concomitant]
     Indication: PRODUCT USED FOR UNKNOWN INDICATION
     Dosage: 7.5 ML, BID
     Route: 047
     Dates: start: 20210104, end: 20210104
  52. NORMAL SALINE [Concomitant]
     Active Substance: SODIUM CHLORIDE
     Indication: PRODUCT USED FOR UNKNOWN INDICATION
     Dosage: 100 ML, 2X/WEEK
     Route: 041
     Dates: start: 20201105, end: 20210108
  53. DISTILLED WATER [WATER FOR INJECTION] [Concomitant]
     Indication: PRODUCT USED FOR UNKNOWN INDICATION
     Dosage: 1 ML, 1X/WEEK
     Route: 058
     Dates: start: 20201109, end: 20210104
  54. SOLDEM 1 [Concomitant]
     Active Substance: DEXTROSE\SODIUM CHLORIDE\SODIUM LACTATE
     Indication: PRODUCT USED FOR UNKNOWN INDICATION
     Dosage: 500 ML
     Route: 041
     Dates: start: 20210109, end: 20210109
  55. PREDNISOLONE. [Concomitant]
     Active Substance: PREDNISOLONE
     Dosage: 15 MG, QD, AFTER BREAKFAST
     Route: 048
     Dates: start: 20201124, end: 20201206
  56. FEBURIC [Concomitant]
     Active Substance: FEBUXOSTAT
     Dosage: 20 MG, QD, AFTER BREAKFAST
     Route: 048
     Dates: start: 20201207, end: 20201207
  57. NEXIUM [Concomitant]
     Active Substance: ESOMEPRAZOLE MAGNESIUM
     Dosage: 20 MG, QD, AFTER BREAKFAST
     Route: 048
     Dates: start: 20201124, end: 20201206
  58. DAIKENCHUTO [Concomitant]
     Active Substance: HERBALS
     Dosage: 2.5 G, TID, (BEFORE MEALS)
     Route: 048
     Dates: end: 20201122
  59. DAIKENCHUTO [Concomitant]
     Active Substance: HERBALS
     Dosage: 2.5 G, TID (BEFORE MEALS)
     Route: 048
     Dates: start: 20201124, end: 20201206
  60. KEFRAL [Concomitant]
     Active Substance: CEFACLOR
     Indication: ACNE
     Dosage: UNK
     Route: 048
  61. KEFRAL [Concomitant]
     Active Substance: CEFACLOR
     Dosage: 250 MG, TID (AFTER MEALS)
     Route: 048
     Dates: start: 20201116, end: 20201118
  62. SAIREITO [Concomitant]
     Active Substance: HERBALS
     Dosage: 18 G, TID (BEFORE MEALS)
     Route: 048
     Dates: start: 20201228, end: 20210105
  63. CALONAL [Concomitant]
     Active Substance: ACETAMINOPHEN
     Dosage: 400 MG, TID (AFTER MEALS)
     Route: 048
     Dates: start: 20201207, end: 20201207
  64. NORMAL SALINE [Concomitant]
     Active Substance: SODIUM CHLORIDE
     Dosage: 20 ML
     Route: 041
     Dates: start: 20210110, end: 20210110
  65. ROMIPLOSTIM [Suspect]
     Active Substance: ROMIPLOSTIM
     Dosage: 500 MICROGRAM, QWK
     Route: 058
     Dates: start: 20200615, end: 20210104
  66. PREDNISOLONE. [Concomitant]
     Active Substance: PREDNISOLONE
     Indication: APLASTIC ANAEMIA
     Dosage: 15 MG
     Route: 048
  67. NEXIUM [Concomitant]
     Active Substance: ESOMEPRAZOLE MAGNESIUM
     Dosage: 20 MG, QD, AFTER BREAKFAST
     Route: 048
     Dates: start: 20201208, end: 20210110
  68. NEORAL [Concomitant]
     Active Substance: CYCLOSPORINE
     Dosage: 200 MG, BID (AFTER BREAKFAST AND DINNER)
     Route: 048
     Dates: start: 20201207, end: 20201207
  69. DAIKENCHUTO [Concomitant]
     Active Substance: HERBALS
     Dosage: 2.5 G, TID (BEFORE MEALS)
     Route: 048
     Dates: start: 20201207, end: 20201207
  70. DAIKENCHUTO [Concomitant]
     Active Substance: HERBALS
     Dosage: 2.5 G, TID (BEFORE MEALS)
     Route: 048
     Dates: start: 20201208, end: 20210110
  71. FUNGIZONE [Concomitant]
     Active Substance: AMPHOTERICIN B
     Indication: PRODUCT USED FOR UNKNOWN INDICATION
     Dosage: UNK
     Route: 048
  72. FUNGIZONE [Concomitant]
     Active Substance: AMPHOTERICIN B
     Dosage: 2 ML (3 TIMES A DAY)
     Route: 048
     Dates: start: 20201109, end: 20201120
  73. ALLOID G [Concomitant]
     Active Substance: SODIUM ALGINATE
     Dosage: 20 ML, TID (BETWEEN EACH MEAL)
     Route: 048
     Dates: start: 20201204, end: 20201206
  74. ALLOID G [Concomitant]
     Active Substance: SODIUM ALGINATE
     Dosage: 20 ML, TID (BETWEEN EACH MEAL)
     Route: 048
     Dates: start: 20201208, end: 20210110
  75. SOLDEM 3A [Concomitant]
     Active Substance: CARBOHYDRATES\POTASSIUM CHLORIDE\SODIUM CHLORIDE\SODIUM LACTATE
     Indication: PRODUCT USED FOR UNKNOWN INDICATION
     Dosage: 500 ML
     Route: 041
     Dates: start: 20210110, end: 20210110
  76. ROMIPLOSTIM [Suspect]
     Active Substance: ROMIPLOSTIM
     Indication: APLASTIC ANAEMIA
     Dosage: 750 MICROGRAM, QWK
     Route: 058
     Dates: start: 20191105, end: 20200608
  77. AMITIZA [Concomitant]
     Active Substance: LUBIPROSTONE
     Dosage: 24 UG, BID (AFTER BREAKFAST AND DINNER)
     Route: 048
     Dates: start: 20201208, end: 20210110
  78. FEBURIC [Concomitant]
     Active Substance: FEBUXOSTAT
     Dosage: 10 MG, QD
     Route: 048
     Dates: end: 20201122
  79. NEXIUM [Concomitant]
     Active Substance: ESOMEPRAZOLE MAGNESIUM
     Indication: PRODUCT USED FOR UNKNOWN INDICATION
     Dosage: 10 MG
     Route: 048
  80. REBAMIPIDE [Concomitant]
     Active Substance: REBAMIPIDE
     Indication: PRODUCT USED FOR UNKNOWN INDICATION
     Dosage: 100 MG
     Route: 048
  81. REBAMIPIDE [Concomitant]
     Active Substance: REBAMIPIDE
     Dosage: 100 MG, TID (AFTER MEALS)
     Route: 048
     Dates: start: 20201124, end: 20201206
  82. HERBAL NOS [Concomitant]
     Active Substance: HERBALS
     Indication: CONSTIPATION
     Dosage: UNK
     Route: 048
  83. MIYA?BM [Concomitant]
     Active Substance: CLOSTRIDIUM BUTYRICUM SPORES STRAIN M-55
     Dosage: 2 G, TID (AFTER MEALS)
     Route: 048
     Dates: start: 20201207, end: 20201207
  84. KEFRAL [Concomitant]
     Active Substance: CEFACLOR
     Dosage: 250 MG, TID (AFTER MEALS)
     Route: 048
     Dates: start: 20201109, end: 20201115
  85. KEFRAL [Concomitant]
     Active Substance: CEFACLOR
     Dosage: 250 MG, TID (AFTER MEALS)
     Route: 048
     Dates: start: 20201119, end: 20201125
  86. ZEBIAX [OZENOXACIN] [Concomitant]
     Indication: ACNE
     Dosage: UNK
     Route: 061
  87. ZEBIAX [OZENOXACIN] [Concomitant]
     Dosage: 100 G, QD
     Route: 061
     Dates: start: 20201109, end: 20201109
  88. ZEBIAX [OZENOXACIN] [Concomitant]
     Dosage: 100 G, QD
     Route: 061
     Dates: start: 20201116, end: 20201116
  89. ZEBIAX [OZENOXACIN] [Concomitant]
     Dosage: 100 G, QD
     Route: 061
     Dates: start: 20201207, end: 20201207
  90. ZEBIAX [OZENOXACIN] [Concomitant]
     Dosage: 100 G, QD
     Route: 061
     Dates: start: 20201228, end: 20201228
  91. SAIREITO [Concomitant]
     Active Substance: HERBALS
     Dosage: 9 G, TID (BEFORE MEALS)
     Route: 048
     Dates: start: 20201209, end: 20201227
  92. ALLOID G [Concomitant]
     Active Substance: SODIUM ALGINATE
     Dosage: 40 ML, TID (BETWEEN EACH MEAL)
     Route: 048
     Dates: start: 20201203, end: 20201203

REACTIONS (4)
  - Influenza [Recovered/Resolved]
  - Platelet count decreased [Not Recovered/Not Resolved]
  - Cerebral haemorrhage [Fatal]
  - Off label use [Unknown]

NARRATIVE: CASE EVENT DATE: 20200103
